FAERS Safety Report 7417384-2 (Version None)
Quarter: 2011Q2

REPORT INFORMATION
  Report Type: 
  Country: None (occurrence: None)
  Receive Date: 20110408
  Receipt Date: 20110328
  Transmission Date: 20111010
  Serious: Yes (Hospitalization)
  Sender: FDA-Public Use
  Company Number: JP-2011-10283

PATIENT
  Age: 62 Year
  Sex: Male
  Weight: 58 kg

DRUGS (14)
  1. DIART (AZOSEMIDE) TABLET, 60 MG [Suspect]
     Indication: FLUID RETENTION
     Dosage: 60 MG MILLIGRAM(S), BID, ORAL
     Route: 048
  2. THYADIN S (LEVOTHYROXINE SODIUM) [Concomitant]
  3. CLONAZEPAM [Concomitant]
  4. SAMSCA [Suspect]
     Indication: FLUID RETENTION
     Dosage: 7.5 MG MILLIGRAM(S), QD, ORAL ; 15 MILLIGRAM(S), QD, ORAL ; 7.5 MG MILLIGRAM(S), QD, ORAL
     Route: 048
     Dates: start: 20101220, end: 20101230
  5. SAMSCA [Suspect]
     Indication: FLUID RETENTION
     Dosage: 7.5 MG MILLIGRAM(S), QD, ORAL ; 15 MILLIGRAM(S), QD, ORAL ; 7.5 MG MILLIGRAM(S), QD, ORAL
     Route: 048
     Dates: start: 20110113
  6. SAMSCA [Suspect]
     Indication: FLUID RETENTION
     Dosage: 7.5 MG MILLIGRAM(S), QD, ORAL ; 15 MILLIGRAM(S), QD, ORAL ; 7.5 MG MILLIGRAM(S), QD, ORAL
     Route: 048
     Dates: start: 20110131
  7. MAGMITT (MAGNESIUM OXIDE) [Concomitant]
  8. FLUITRAN (TRICHLORMETHIAZIDE) TABLET, 2MG (MILLIGRAM) [Suspect]
     Indication: FLUID RETENTION
     Dosage: 2 MG MILLIGRAM(S) QD, ORAL
     Route: 048
  9. WARFARIN (WARFARIN POATSSIUM) [Concomitant]
  10. LASIX [Suspect]
     Indication: FLUID RETENTION
     Dosage: 40 MG MILLIGRAM(S) QD,  ORAL
     Route: 048
  11. ALOSITOL (ALOLOPUROL) [Concomitant]
  12. ASPARA POTASSIUM (ASPARA POTASSIUM) [Concomitant]
  13. LANIRAPID (METILDOGOXIN) [Concomitant]
  14. SELERA (EPLERENONE) [Concomitant]

REACTIONS (11)
  - ALTERED STATE OF CONSCIOUSNESS [None]
  - THIRST [None]
  - OEDEMA [None]
  - HALLUCINATION, VISUAL [None]
  - PSYCHIATRIC SYMPTOM [None]
  - WEIGHT FLUCTUATION [None]
  - POLYDIPSIA [None]
  - DEHYDRATION [None]
  - DISORIENTATION [None]
  - HYPERNATRAEMIA [None]
  - BLOOD UREA INCREASED [None]
